FAERS Safety Report 8465167-7 (Version None)
Quarter: 2012Q2

REPORT INFORMATION
  Report Type: 
  Country: None (occurrence: None)
  Receive Date: 20120626
  Receipt Date: 20120618
  Transmission Date: 20120825
  Serious: Yes (Hospitalization, Other)
  Sender: FDA-Public Use
  Company Number: PHHY2012FR053173

PATIENT
  Sex: Female

DRUGS (6)
  1. STALEVO 100 [Suspect]
     Dosage: 200MG/50MG/12.5MG 4 TABLETS DAILY
     Route: 048
     Dates: start: 20120301
  2. EXELON [Concomitant]
  3. CALCIUM CARBONATE [Concomitant]
  4. PAROXETINE HCL [Suspect]
     Indication: DEPRESSION
     Dosage: 1DF DAILY UNK
     Route: 048
     Dates: end: 20120320
  5. MODOPAR [Suspect]
     Indication: PARKINSON'S DISEASE
     Dosage: 1 DF, DAILY
     Route: 048
     Dates: end: 20120320
  6. STALEVO 100 [Suspect]
     Indication: PARKINSON'S DISEASE
     Dosage: 200MG/150MG/37.5MG, 4DF DAILY
     Route: 048

REACTIONS (9)
  - PSYCHOMOTOR HYPERACTIVITY [None]
  - DYSKINESIA [None]
  - CONFUSIONAL STATE [None]
  - FALL [None]
  - AGITATION [None]
  - DISORIENTATION [None]
  - PARKINSON'S DISEASE [None]
  - HALLUCINATION, VISUAL [None]
  - ANXIETY [None]
